FAERS Safety Report 5063674-0 (Version None)
Quarter: 2006Q3

REPORT INFORMATION
  Report Type: 
  Country: None (occurrence: None)
  Receive Date: 20060724
  Receipt Date: 20060717
  Transmission Date: 20061208
  Serious: Yes (Other)
  Sender: FDA-Public Use
  Company Number: BEWYE218118JUL06

PATIENT
  Sex: Female

DRUGS (1)
  1. EFFEXOR [Suspect]
     Dosage: 75 MG 1X PER 1 DAY ORAL
     Route: 048
     Dates: start: 20060301

REACTIONS (5)
  - DRUG WITHDRAWAL SYNDROME [None]
  - ENERGY INCREASED [None]
  - HYPOMANIA [None]
  - MIDDLE INSOMNIA [None]
  - SUICIDE ATTEMPT [None]
